FAERS Safety Report 8903656 (Version 5)
Quarter: 2013Q3

REPORT INFORMATION
  Report Type: Spontaneous
  Country: NL (occurrence: NL)
  Receive Date: 20121113
  Receipt Date: 20130827
  Transmission Date: 20140515
  Serious: Yes (Death, Hospitalization)
  Sender: FDA-Public Use
  Company Number: NL-MILLENNIUM PHARMACEUTICALS, INC.-2012-08030

PATIENT
  Sex: 0

DRUGS (13)
  1. VELCADE [Suspect]
     Indication: PLASMA CELL MYELOMA
     Dosage: 1.3 MG/M2, UNK
  2. VELCADE [Suspect]
     Dosage: 1.6 MG/M2, CYCLIC
  3. VELCADE [Suspect]
     Dosage: 2.4 MG, UNK
     Route: 042
     Dates: start: 20100305, end: 20100319
  4. REVLIMID [Suspect]
     Indication: PLASMA CELL MYELOMA
     Dosage: 10 MG, UNK
     Route: 042
     Dates: start: 20100305, end: 20100323
  5. REVLIMID [Suspect]
     Dosage: 15 MG, CYCLIC
  6. REVLIMID [Suspect]
     Dosage: 20 MG, CYCLIC
  7. DEXAMETHASONE [Suspect]
     Indication: PLASMA CELL MYELOMA
     Dosage: 20 MG, UNK
     Route: 042
     Dates: start: 20100305, end: 20100320
  8. PRIMPERAN                          /00041901/ [Concomitant]
     Indication: PROPHYLAXIS
     Dosage: 10 MG, PRN
     Route: 048
     Dates: start: 200812, end: 20100321
  9. PRIMPERAN                          /00041901/ [Concomitant]
     Dosage: 20 MG, PRN
     Route: 048
     Dates: start: 20100305, end: 20100321
  10. TRAMADOL [Concomitant]
     Indication: PAIN
     Dosage: 100 MG, UNK
     Route: 048
     Dates: start: 20081127, end: 20100321
  11. ZELITREX                           /01269701/ [Concomitant]
     Indication: PROPHYLAXIS
     Dosage: 1000 MG, UNK
     Route: 048
     Dates: start: 20100305, end: 20100321
  12. COTRIMOXAZOL [Concomitant]
     Indication: PROPHYLAXIS
     Dosage: 960 MG, UNK
     Route: 048
     Dates: start: 20100305, end: 20100321
  13. ASCAL                              /00002702/ [Concomitant]
     Indication: PROPHYLAXIS
     Dosage: 80 MG, UNK
     Route: 048
     Dates: start: 20100305, end: 20100321

REACTIONS (1)
  - Aortic aneurysm rupture [Fatal]
